FAERS Safety Report 24035864 (Version 1)
Quarter: 2024Q3

REPORT INFORMATION
  Report Type: Spontaneous
  Country: IL (occurrence: IL)
  Receive Date: 20240701
  Receipt Date: 20240701
  Transmission Date: 20241017
  Serious: Yes (Life-Threatening, Hospitalization, Other)
  Sender: NOVARTIS
  Company Number: IL-002147023-NVSC2024IL133294

PATIENT
  Age: 53 Year
  Sex: Female

DRUGS (4)
  1. TAFINLAR [Suspect]
     Active Substance: DABRAFENIB MESYLATE
     Indication: Malignant melanoma
     Dosage: UNK (AT 50% REDUCED DOSE)
     Route: 065
     Dates: start: 202107, end: 202207
  2. MEKINIST [Suspect]
     Active Substance: TRAMETINIB DIMETHYL SULFOXIDE
     Indication: Malignant melanoma
     Dosage: UNK (AT 50% REDUCED DOSE)
     Route: 065
     Dates: start: 202107, end: 202207
  3. IPILIMUMAB [Suspect]
     Active Substance: IPILIMUMAB
     Indication: Product used for unknown indication
     Dosage: UNK
     Route: 065
  4. NIVOLUMAB [Suspect]
     Active Substance: NIVOLUMAB
     Indication: Product used for unknown indication
     Dosage: UNK
     Route: 065

REACTIONS (16)
  - Seizure [Recovering/Resolving]
  - Cerebral disorder [Recovering/Resolving]
  - Confusional state [Recovering/Resolving]
  - Aphasia [Recovering/Resolving]
  - Hepatitis [Unknown]
  - Metastatic neoplasm [Unknown]
  - Tracheal deviation [Unknown]
  - Tracheal obstruction [Unknown]
  - Lung disorder [Unknown]
  - Malignant neoplasm progression [Unknown]
  - Cerebral congestion [Not Recovered/Not Resolved]
  - Dry eye [Unknown]
  - Irritable bowel syndrome [Unknown]
  - Erythema nodosum [Unknown]
  - Pyrexia [Unknown]
  - Arthralgia [Unknown]

NARRATIVE: CASE EVENT DATE: 20210101
